FAERS Safety Report 18452130 (Version 1)
Quarter: 2020Q4

REPORT INFORMATION
  Report Type: Spontaneous
  Country: US (occurrence: US)
  Receive Date: 20201031
  Receipt Date: 20201031
  Transmission Date: 20210114
  Serious: No
  Sender: FDA-Public Use
  Company Number: None

PATIENT
  Age: 62 Year
  Sex: Male
  Weight: 56.9 kg

DRUGS (18)
  1. PRAVASTATIN 20 MG [Concomitant]
     Active Substance: PRAVASTATIN
     Dates: start: 20200803, end: 20200813
  2. SILDENAFIL 10 MG [Concomitant]
     Dates: start: 20200729, end: 20200813
  3. LEVETIRACETAM 750 MG [Concomitant]
     Active Substance: LEVETIRACETAM
     Dates: start: 20200730, end: 20200813
  4. MYCOPHENOLATE MOFETIL 1500 MG [Concomitant]
     Dates: start: 20200730, end: 20200813
  5. INSULIN NPH 10 UNITS [Concomitant]
     Dates: start: 20200803, end: 20200813
  6. SENNA-DOCUSATE 8.6-50 MG [Concomitant]
     Dates: start: 20200801, end: 20200813
  7. FAMOTIDINE 20 MG [Concomitant]
     Active Substance: FAMOTIDINE
     Dates: start: 20200727, end: 20200813
  8. INSULIN LISPRO 1-3 UNITS [Concomitant]
     Dates: start: 20200730, end: 20200813
  9. INSULIN LISPRO 6 UNITS [Concomitant]
     Dates: start: 20200804, end: 20200813
  10. MAGNESIUM-OXIDE 800 MG [Concomitant]
     Dates: start: 20200804, end: 20200812
  11. SULFAMETHOXAZOLE -TRIMETHOPRIM 400-80 MG [Concomitant]
     Dates: start: 20200801, end: 20200806
  12. TACROLIMUS. [Suspect]
     Active Substance: TACROLIMUS
     Indication: IMMUNOSUPPRESSANT DRUG THERAPY
     Route: 048
     Dates: start: 20200728
  13. MIDODRINE 10 MG [Concomitant]
     Dates: start: 20200801, end: 20200804
  14. NYSTATIN 500,000 UNITS [Concomitant]
     Dates: start: 20200728, end: 20200813
  15. PREDNISONE 25 MG [Concomitant]
     Dates: start: 20200804, end: 20200813
  16. TACROLIMUS. [Suspect]
     Active Substance: TACROLIMUS
     Indication: IMMUNOSUPPRESSANT DRUG THERAPY
     Route: 048
     Dates: start: 20200728
  17. ASPIRIN 81 MG [Concomitant]
     Active Substance: ASPIRIN
     Dates: start: 20200803, end: 20200813
  18. VALGANCICLOVIR 900 MG [Concomitant]
     Dates: start: 20200804, end: 20200813

REACTIONS (4)
  - Product substitution issue [None]
  - Therapeutic product effect delayed [None]
  - Drug level above therapeutic [None]
  - Heart transplant rejection [None]

NARRATIVE: CASE EVENT DATE: 20200804
